FAERS Safety Report 5260058-7 (Version None)
Quarter: 2007Q1

REPORT INFORMATION
  Report Type: 
  Country: None (occurrence: None)
  Receive Date: 20070309
  Receipt Date: 20060222
  Transmission Date: 20070707
  Serious: No
  Sender: FDA-Public Use
  Company Number: US-GLAXOSMITHKLINE-A0594589A

PATIENT
  Age: 64 Year
  Sex: Female

DRUGS (2)
  1. NICORETTE [Suspect]
     Dates: start: 20060118
  2. NICORETTE [Suspect]
     Dates: start: 20060118

REACTIONS (3)
  - GINGIVAL PAIN [None]
  - GLOSSODYNIA [None]
  - ORAL PAIN [None]
